FAERS Safety Report 8516937-8 (Version None)
Quarter: 2012Q3

REPORT INFORMATION
  Report Type: 
  Country: None (occurrence: None)
  Receive Date: 20120718
  Receipt Date: 20120706
  Transmission Date: 20120928
  Serious: Yes (Other)
  Sender: FDA-Public Use
  Company Number: US-ELI_LILLY_AND_COMPANY-US201206007024

PATIENT
  Sex: Female
  Weight: 49.887 kg

DRUGS (1)
  1. FORTEO [Suspect]
     Indication: OSTEOPOROSIS
     Dosage: 20 UG, QD
     Dates: start: 20120618

REACTIONS (9)
  - HYPOTENSION [None]
  - HYPOPNOEA [None]
  - COLD SWEAT [None]
  - ASTHENIA [None]
  - FEELING HOT [None]
  - PULSE ABNORMAL [None]
  - GASTROINTESTINAL MOTILITY DISORDER [None]
  - NAUSEA [None]
  - SYNCOPE [None]
